FAERS Safety Report 9058387 (Version 1)
Quarter: 2013Q1

REPORT INFORMATION
  Report Type: Spontaneous
  Country: BR (occurrence: BR)
  Receive Date: 20130211
  Receipt Date: 20130211
  Transmission Date: 20140127
  Serious: Yes (Other)
  Sender: FDA-Public Use
  Company Number: BR-ACCORD-016301

PATIENT
  Age: 57 Year
  Sex: Female
  Weight: 49 kg

DRUGS (10)
  1. ONDANSETRON [Concomitant]
     Route: 042
     Dates: start: 20120921, end: 20120921
  2. MORPHINE [Concomitant]
     Route: 048
     Dates: start: 20120921, end: 20120921
  3. DIPHENHYDRAMINE [Concomitant]
     Route: 042
     Dates: start: 20120921, end: 20120921
  4. GABAPENTIN [Concomitant]
     Route: 048
     Dates: start: 20120921, end: 20120921
  5. LACTULOSE [Concomitant]
     Route: 048
     Dates: start: 20120921, end: 20120921
  6. CARBOPLATIN [Concomitant]
     Route: 042
     Dates: start: 20120921, end: 20120921
  7. RANITIDINE [Concomitant]
     Route: 042
     Dates: start: 20120921, end: 20120921
  8. PACLITAXEL [Suspect]
     Indication: CHEMOTHERAPY
     Route: 042
     Dates: start: 20120921, end: 20120921
  9. DEXAMETHASONE [Concomitant]
     Route: 048
     Dates: start: 20120921, end: 20120921
  10. DEXAMETHASONE [Concomitant]
     Route: 042
     Dates: start: 20120921, end: 20120921

REACTIONS (3)
  - Hyperaemia [Recovered/Resolved]
  - Burning sensation [Recovered/Resolved]
  - Discomfort [Recovered/Resolved]
